FAERS Safety Report 10460156 (Version 3)
Quarter: 2014Q4

REPORT INFORMATION
  Report Type: Report from Study
  Country: CA (occurrence: CA)
  Receive Date: 20140917
  Receipt Date: 20141022
  Transmission Date: 20150528
  Serious: Yes (Other)
  Sender: FDA-Public Use
  Company Number: CA-PFIZER INC-2014252380

PATIENT
  Age: 26 Year
  Sex: Male
  Weight: 54.42 kg

DRUGS (3)
  1. PROBENECID. [Concomitant]
     Active Substance: PROBENECID
     Dosage: 500 MG, 4X/DAY
     Route: 048
     Dates: start: 20140721, end: 20140730
  2. PENICILLIN G PROCAINE. [Suspect]
     Active Substance: PENICILLIN G PROCAINE
     Indication: NEUROSYPHILIS
     Dosage: 2.4 MU, 1X/DAY
     Route: 030
     Dates: start: 20140721, end: 20140730
  3. BICILLIN [Concomitant]
     Active Substance: PENICILLIN G BENZATHINE
     Dosage: 2.4 MU
     Route: 030
     Dates: start: 20140731, end: 20140731

REACTIONS (4)
  - Pain [Recovered/Resolved]
  - Injection site reaction [Recovered/Resolved]
  - Pain in extremity [Recovered/Resolved]
  - Gait disturbance [Recovered/Resolved]

NARRATIVE: CASE EVENT DATE: 20140721
